FAERS Safety Report 19794022 (Version 3)
Quarter: 2021Q3

REPORT INFORMATION
  Report Type: Spontaneous
  Country: US (occurrence: US)
  Receive Date: 20210907
  Receipt Date: 20210928
  Transmission Date: 20211014
  Serious: No
  Sender: FDA-Public Use
  Company Number: US-GLAXOSMITHKLINE-US2021AMR185997

PATIENT
  Sex: Female

DRUGS (3)
  1. MAALOX ANTACID [Suspect]
     Active Substance: ALUMINUM HYDROXIDE\DIMETHICONE\MAGNESIUM HYDROXIDE
     Indication: PRODUCT USED FOR UNKNOWN INDICATION
     Dosage: UNK
  2. ZEJULA [Suspect]
     Active Substance: NIRAPARIB
     Dosage: 200 MG, QD
  3. ZEJULA [Suspect]
     Active Substance: NIRAPARIB
     Indication: PRODUCT USED FOR UNKNOWN INDICATION
     Dosage: 300 MG, QD
     Dates: start: 20210821, end: 20210901

REACTIONS (14)
  - Arthritis [Unknown]
  - Blood count abnormal [Unknown]
  - Disturbance in attention [Unknown]
  - Arthralgia [Unknown]
  - Sleep disorder [Unknown]
  - Taste disorder [Recovering/Resolving]
  - Oral pain [Unknown]
  - Pain [Unknown]
  - Red blood cell count decreased [Unknown]
  - Glossodynia [Unknown]
  - Sleep disorder due to a general medical condition [Unknown]
  - Constipation [Recovering/Resolving]
  - Haemoglobin decreased [Unknown]
  - Dizziness [Not Recovered/Not Resolved]
